FAERS Safety Report 23150948 (Version 1)
Quarter: 2023Q4

REPORT INFORMATION
  Report Type: Spontaneous
  Country: ES (occurrence: ES)
  Receive Date: 20231106
  Receipt Date: 20231106
  Transmission Date: 20240110
  Serious: No
  Sender: FDA-Public Use
  Company Number: ES-SCALL-2023-APC-059401

PATIENT
  Sex: Male

DRUGS (1)
  1. DUTASTERIDE [Suspect]
     Active Substance: DUTASTERIDE
     Route: 065

REACTIONS (4)
  - Oral discomfort [Unknown]
  - Oral pain [Unknown]
  - Tongue discomfort [Unknown]
  - Glossodynia [Unknown]
